FAERS Safety Report 12240795 (Version 1)
Quarter: 2016Q2

REPORT INFORMATION
  Report Type: Spontaneous
  Country: PL (occurrence: PL)
  Receive Date: 20160406
  Receipt Date: 20160406
  Transmission Date: 20160815
  Serious: Yes (Life-Threatening)
  Sender: FDA-Public Use
  Company Number: PL-ACCORD-039351

PATIENT
  Age: 74 Year
  Sex: Male
  Weight: 74 kg

DRUGS (2)
  1. NAVIREL [Suspect]
     Active Substance: VINORELBINE TARTRATE
     Indication: LUNG CARCINOMA CELL TYPE UNSPECIFIED STAGE I
     Dosage: STRENGTH. 50 MG??ALSO RECEIVED ON 18-MAR-2016.??RECEIVED 03RD CYCLE
     Route: 042
     Dates: start: 20160311, end: 20160311
  2. CISPLATIN ACCORD [Suspect]
     Active Substance: CISPLATIN
     Indication: LUNG CARCINOMA CELL TYPE UNSPECIFIED STAGE I
     Dosage: STRENGTH. 100 MG?RECEIVED 3RD CYCLE.
     Route: 042
     Dates: start: 20160311, end: 20160311

REACTIONS (2)
  - Bronchitis [Unknown]
  - Neutropenia [Unknown]

NARRATIVE: CASE EVENT DATE: 20160322
